FAERS Safety Report 7229794-7 (Version None)
Quarter: 2011Q1

REPORT INFORMATION
  Report Type: 
  Country: None (occurrence: None)
  Receive Date: 20110117
  Receipt Date: 20110106
  Transmission Date: 20110831
  Serious: Yes (Hospitalization)
  Sender: FDA-Public Use
  Company Number: FR-GILEAD-E2B_00001042

PATIENT
  Age: 59 Year
  Sex: Female

DRUGS (13)
  1. SINTROM [Suspect]
     Indication: ANTICOAGULANT THERAPY
     Route: 065
     Dates: end: 20101201
  2. FLOLAN [Concomitant]
     Indication: PULMONARY ARTERIAL HYPERTENSION
     Dosage: 23NGKM PER DAY
  3. ALDACTONE [Concomitant]
     Route: 048
  4. AMBRISENTAN [Suspect]
     Indication: PULMONARY ARTERIAL HYPERTENSION
     Route: 048
     Dates: start: 20090301
  5. BOSENTAN [Concomitant]
  6. VENTILASTIN [Concomitant]
     Indication: ASTHMA
     Route: 065
  7. SPIRIVA [Concomitant]
     Route: 065
  8. REVATIO [Concomitant]
     Indication: PULMONARY ARTERIAL HYPERTENSION
     Route: 065
  9. NOVOPULMON [Concomitant]
     Indication: ASTHMA
     Route: 065
  10. FORMOTEROL FUMERATE [Concomitant]
     Indication: ASTHMA
     Route: 065
  11. LASIX [Concomitant]
     Dosage: 65MG PER DAY
     Route: 048
  12. DIFFU K [Concomitant]
     Route: 065
  13. AMBRISENTAN [Suspect]
     Dates: start: 20091001

REACTIONS (7)
  - POST PROCEDURAL HAEMORRHAGE [None]
  - PALPITATIONS [None]
  - INTERNATIONAL NORMALISED RATIO INCREASED [None]
  - HAEMOGLOBIN DECREASED [None]
  - FATIGUE [None]
  - ANAEMIA [None]
  - OVERDOSE [None]
